FAERS Safety Report 18877338 (Version 8)
Quarter: 2023Q2

REPORT INFORMATION
  Report Type: Spontaneous
  Country: DE (occurrence: DE)
  Receive Date: 20210211
  Receipt Date: 20230508
  Transmission Date: 20230722
  Serious: Yes (Other)
  Sender: FDA-Public Use
  Company Number: DE-002147023-NVSC2021DE023784

PATIENT
  Age: 55 Year
  Sex: Female
  Weight: 88 kg

DRUGS (4)
  1. LETROZOLE [Suspect]
     Active Substance: LETROZOLE
     Indication: Breast cancer metastatic
     Dosage: 2.5 MILLIGRAM ONCE A DAY (2.5 MG, QD, 21 DAYS INTAKE, 7 DAYS PAUSE)
     Route: 048
     Dates: start: 20201201
  2. KISQALI [Suspect]
     Active Substance: RIBOCICLIB
     Indication: Breast cancer metastatic
     Dosage: 600 MILLIGRAM ONCE A DAY (600 MG, QD, 21 DAYS INTAKE, 7 DAYS PAUSE)
     Route: 048
     Dates: start: 20210518
  3. KISQALI [Suspect]
     Active Substance: RIBOCICLIB
     Dosage: 600 MILLIGRAM ONCE A DAY (600 MG, QD, 21 DAYS INTAKE, 7 DAYS PAUSE)
     Route: 048
     Dates: start: 20210316, end: 20210503
  4. KISQALI [Suspect]
     Active Substance: RIBOCICLIB
     Dosage: 600 MILLIGRAM ONCE A DAY (600 MG, QD, 21 DAYS INTAKE, 7 DAYS PAUSE)
     Route: 048
     Dates: start: 20201201, end: 20210301

REACTIONS (2)
  - Electrocardiogram QT prolonged [Recovered/Resolved]
  - Bundle branch block left [Unknown]

NARRATIVE: CASE EVENT DATE: 20210126
